FAERS Safety Report 7592292-5 (Version None)
Quarter: 2011Q3

REPORT INFORMATION
  Report Type: 
  Country: None (occurrence: None)
  Receive Date: 20110705
  Receipt Date: 20110705
  Transmission Date: 20111222
  Serious: No
  Sender: FDA-Public Use
  Company Number: None

PATIENT
  Sex: Female
  Weight: 81.6475 kg

DRUGS (1)
  1. LEVAQUIN [Suspect]
     Indication: SKIN INFECTION
     Dosage: ONE DAILY PO
     Route: 048
     Dates: start: 20110621, end: 20110630

REACTIONS (9)
  - INSOMNIA [None]
  - OEDEMA PERIPHERAL [None]
  - MUSCULOSKELETAL PAIN [None]
  - MYALGIA [None]
  - BACK PAIN [None]
  - DYSGEUSIA [None]
  - ABNORMAL DREAMS [None]
  - ARTHRALGIA [None]
  - DIZZINESS [None]
